FAERS Safety Report 12750835 (Version 2)
Quarter: 2016Q4

REPORT INFORMATION
  Report Type: Report from Study
  Country: None (occurrence: US)
  Receive Date: 20160915
  Receipt Date: 20161128
  Transmission Date: 20170207
  Serious: Yes (Hospitalization)
  Sender: FDA-Public Use
  Company Number: US-ABBVIE-16K-163-1724010-00

PATIENT
  Age: 42 Year
  Sex: Male
  Weight: 108.96 kg

DRUGS (2)
  1. HUMIRA [Suspect]
     Active Substance: ADALIMUMAB
     Indication: PSORIASIS
     Route: 058
     Dates: start: 201607, end: 20160905
  2. HUMIRA [Suspect]
     Active Substance: ADALIMUMAB
     Route: 058
     Dates: start: 20160919

REACTIONS (8)
  - Hypokalaemia [Recovered/Resolved]
  - Cardiac disorder [Recovering/Resolving]
  - Viral infection [Recovered/Resolved]
  - Pyrexia [Recovered/Resolved]
  - Influenza like illness [Recovered/Resolved]
  - Electrolyte imbalance [Recovered/Resolved]
  - Dehydration [Recovered/Resolved]
  - Heart alternation [Recovered/Resolved]

NARRATIVE: CASE EVENT DATE: 20160831
